FAERS Safety Report 9886520 (Version 1)
Quarter: 2014Q1

REPORT INFORMATION
  Report Type: Spontaneous
  Country: IT (occurrence: IT)
  Receive Date: 20140210
  Receipt Date: 20140210
  Transmission Date: 20141002
  Serious: Yes (Other)
  Sender: FDA-Public Use
  Company Number: IT-WATSON-2014-02116

PATIENT
  Age: 40 Year
  Sex: Female
  Weight: 80 kg

DRUGS (4)
  1. FLUOXETINE HYDROCHLORIDE [Suspect]
     Indication: WEIGHT LOSS DIET
     Dosage: UNK
     Route: 048
     Dates: start: 20130101, end: 20131101
  2. BUPROPION HYDROCHLORIDE (UNKNOWN) [Suspect]
     Indication: WEIGHT LOSS DIET
     Dosage: UNK
     Route: 048
     Dates: start: 20130101, end: 20131101
  3. METFORMIN (UNKNOWN) [Suspect]
     Indication: WEIGHT LOSS DIET
     Dosage: UNK
     Route: 048
     Dates: start: 20130101, end: 20131101
  4. EPHEDRINE (UNKNOWN) [Suspect]
     Indication: WEIGHT LOSS DIET
     Dosage: UNK
     Route: 048
     Dates: start: 20130101, end: 20131101

REACTIONS (4)
  - Dysphoria [Unknown]
  - Insomnia [Unknown]
  - Reactive psychosis [Unknown]
  - Off label use [Unknown]
